FAERS Safety Report 13260227 (Version 7)
Quarter: 2017Q2

REPORT INFORMATION
  Report Type: Spontaneous
  Country: JP (occurrence: JP)
  Receive Date: 20170222
  Receipt Date: 20170623
  Transmission Date: 20170830
  Serious: Yes (Hospitalization)
  Sender: FDA-Public Use
  Company Number: JP-PFIZER INC-2017075518

PATIENT
  Age: 33 Year
  Sex: Male
  Weight: 54 kg

DRUGS (4)
  1. ALEVIATIN [Concomitant]
     Active Substance: PHENYTOIN SODIUM
     Dosage: UNK
  2. VALTREX [Concomitant]
     Active Substance: VALACYCLOVIR HYDROCHLORIDE
     Indication: HERPES VIRUS INFECTION
     Dosage: UNK
     Dates: start: 20150710, end: 20150716
  3. FOSPHENYTOIN SODIUM. [Suspect]
     Active Substance: FOSPHENYTOIN SODIUM
     Indication: STATUS EPILEPTICUS
     Dosage: 0.3 MG/KG (750MG), 1X/DAY
     Route: 041
     Dates: start: 20150629, end: 20150629
  4. FOSPHENYTOIN SODIUM. [Suspect]
     Active Substance: FOSPHENYTOIN SODIUM
     Dosage: 0.1 MG/KG, 1X/DAY
     Route: 041
     Dates: start: 20150630, end: 20150701

REACTIONS (2)
  - Fixed eruption [Recovered/Resolved]
  - Condition aggravated [Recovered/Resolved]

NARRATIVE: CASE EVENT DATE: 20150705
